FAERS Safety Report 7658327-6 (Version None)
Quarter: 2011Q3

REPORT INFORMATION
  Report Type: 
  Country: None (occurrence: None)
  Receive Date: 20110802
  Receipt Date: 20110720
  Transmission Date: 20111222
  Serious: Yes (Disabling)
  Sender: FDA-Public Use
  Company Number: 2011AP001556

PATIENT
  Age: 68 Year
  Sex: Male

DRUGS (7)
  1. PREDNISOLONE [Concomitant]
  2. CODEINE PHOSPHATE (CODEINE PHOSPHATE) [Concomitant]
  3. ACETAMINOPHEN [Concomitant]
  4. ALENDRONATE SODIUM [Suspect]
     Indication: OSTEOPOROSIS PROPHYLAXIS
     Dosage: 70 MG; QW; PO
     Route: 048
     Dates: start: 20080331, end: 20110222
  5. ZOPICLONE (ZOPICLONE) [Concomitant]
  6. CHLORPHENIRAMINE TAB [Concomitant]
  7. NAPROXEN [Concomitant]

REACTIONS (3)
  - MYALGIA [None]
  - ASTHENIA [None]
  - EXTRASYSTOLES [None]
